FAERS Safety Report 7713743-9 (Version None)
Quarter: 2011Q3

REPORT INFORMATION
  Report Type: 
  Country: None (occurrence: None)
  Receive Date: 20110826
  Receipt Date: 20110817
  Transmission Date: 20111222
  Serious: Yes (Hospitalization)
  Sender: FDA-Public Use
  Company Number: CH-ASTRAZENECA-2011SE49869

PATIENT
  Age: 13 Year
  Sex: Female
  Weight: 41 kg

DRUGS (6)
  1. AMBISOME [Suspect]
     Route: 040
     Dates: start: 20110721, end: 20110727
  2. ZOFRAN [Concomitant]
     Route: 048
     Dates: start: 20110707
  3. AMIKIN [Concomitant]
     Route: 048
     Dates: start: 20110718, end: 20110726
  4. NEXIUM [Concomitant]
     Route: 048
  5. MEROPENEM [Suspect]
     Route: 040
     Dates: start: 20110707, end: 20110730
  6. FLAGYL [Suspect]
     Route: 048
     Dates: start: 20110715, end: 20110804

REACTIONS (1)
  - PURPURA [None]
